FAERS Safety Report 7062058-3 (Version None)
Quarter: 2010Q4

REPORT INFORMATION
  Report Type: 
  Country: None (occurrence: None)
  Receive Date: 20101026
  Receipt Date: 20101020
  Transmission Date: 20110411
  Serious: Yes (Death, Hospitalization)
  Sender: FDA-Public Use
  Company Number: A0888689A

PATIENT
  Sex: Male
  Weight: 84 kg

DRUGS (3)
  1. SERETIDE [Suspect]
     Indication: CHRONIC OBSTRUCTIVE PULMONARY DISEASE
     Dosage: 1PUFF TWICE PER DAY
     Route: 055
     Dates: start: 20080101, end: 20100501
  2. CALCORT [Concomitant]
     Dosage: .5TAB IN THE MORNING
     Route: 048
     Dates: start: 20070101, end: 20100530
  3. CORTICOID [Concomitant]

REACTIONS (4)
  - CERVICAL VERTEBRAL FRACTURE [None]
  - COMA [None]
  - PULMONARY FIBROSIS [None]
  - TRACHEOSTOMY [None]
